FAERS Safety Report 6134114-5 (Version None)
Quarter: 2009Q1

REPORT INFORMATION
  Report Type: 
  Country: None (occurrence: None)
  Receive Date: 20090326
  Receipt Date: 20090323
  Transmission Date: 20090719
  Serious: Yes (Hospitalization)
  Sender: FDA-Public Use
  Company Number: JP-ASTRAZENECA-2009AP02117

PATIENT
  Sex: Male

DRUGS (1)
  1. NOLVADEX [Suspect]
     Indication: BREAST CANCER MALE
     Dosage: DOSE UNKNOWN
     Route: 048

REACTIONS (1)
  - PROSTATE CANCER [None]
